FAERS Safety Report 9604171 (Version 2)
Quarter: 2013Q4

REPORT INFORMATION
  Report Type: Spontaneous
  Country: IT (occurrence: IT)
  Receive Date: 20131008
  Receipt Date: 20131108
  Transmission Date: 20140711
  Serious: Yes (Hospitalization)
  Sender: FDA-Public Use
  Company Number: IT-BRISTOL-MYERS SQUIBB COMPANY-19456326

PATIENT
  Age: 73 Year
  Sex: Female

DRUGS (9)
  1. COUMADIN TABS 5 MG [Suspect]
     Indication: ATRIAL FIBRILLATION
     Dosage: 1DF:1UNIT
     Route: 048
     Dates: start: 20050101, end: 20130915
  2. LASIX [Concomitant]
     Dosage: TAB
  3. LUVION [Concomitant]
     Dosage: TABS
  4. TRIATEC [Concomitant]
     Dosage: TABS
  5. CARDICOR [Concomitant]
     Dosage: TABS
  6. VALPRESSION [Concomitant]
     Dosage: CAPS
  7. ZYLORIC [Concomitant]
     Dosage: TABS
  8. VECLAM [Concomitant]
     Dosage: TABS
  9. BENTELAN [Concomitant]
     Dosage: TABS

REACTIONS (2)
  - Renal failure [Recovering/Resolving]
  - International normalised ratio increased [Recovering/Resolving]
